FAERS Safety Report 7762668-1 (Version None)
Quarter: 2011Q3

REPORT INFORMATION
  Report Type: 
  Country: None (occurrence: None)
  Receive Date: 20110920
  Receipt Date: 20110912
  Transmission Date: 20111222
  Serious: Yes (Hospitalization, Other)
  Sender: FDA-Public Use
  Company Number: US-CELGENEUS-163-21880-11061150

PATIENT
  Sex: Female
  Weight: 61.2 kg

DRUGS (2)
  1. REVLIMID [Suspect]
     Indication: MULTIPLE MYELOMA
     Dosage: 25 MILLIGRAM
     Route: 048
     Dates: start: 20110505
  2. REVLIMID [Suspect]
     Dosage: 15 MILLIGRAM
     Route: 048
     Dates: start: 20110101

REACTIONS (6)
  - OEDEMA PERIPHERAL [None]
  - PULMONARY EMBOLISM [None]
  - INFECTION [None]
  - URINE OUTPUT DECREASED [None]
  - PULMONARY OEDEMA [None]
  - PNEUMONIA [None]
